FAERS Safety Report 4783225-5 (Version None)
Quarter: 2005Q3

REPORT INFORMATION
  Report Type: 
  Country: None (occurrence: None)
  Receive Date: 20050928
  Receipt Date: 20050928
  Transmission Date: 20060218
  Serious: Yes (Hospitalization)
  Sender: FDA-Public Use
  Company Number: None

PATIENT
  Age: 62 Year
  Sex: Male
  Weight: 78 kg

DRUGS (9)
  1. NAPROXEN [Suspect]
     Indication: BONE PAIN
     Dosage: 500 MG BID
  2. NAPROXEN [Suspect]
     Indication: OSTEITIS DEFORMANS
     Dosage: 500 MG BID
  3. IBUPROFEN [Suspect]
     Indication: BONE PAIN
     Dosage: 800 MG QID
  4. IBUPROFEN [Suspect]
     Indication: OSTEITIS DEFORMANS
     Dosage: 800 MG QID
  5. ZOCOR [Concomitant]
  6. FOSAMAX [Concomitant]
  7. LOTENSIN/HCTZ [Concomitant]
  8. NEURONTIN [Concomitant]
  9. PRILOSEC [Concomitant]

REACTIONS (7)
  - ALCOHOL USE [None]
  - DIZZINESS [None]
  - EPISTAXIS [None]
  - HAEMATEMESIS [None]
  - MOUTH HAEMORRHAGE [None]
  - ULCER HAEMORRHAGE [None]
  - VOMITING PROJECTILE [None]
